FAERS Safety Report 21082287 (Version 4)
Quarter: 2023Q1

REPORT INFORMATION
  Report Type: Spontaneous
  Country: US (occurrence: US)
  Receive Date: 20220714
  Receipt Date: 20230317
  Transmission Date: 20230417
  Serious: No
  Sender: FDA-Public Use
  Company Number: US-BIOGEN-2022BI01139437

PATIENT
  Age: 65 Year
  Sex: Female

DRUGS (1)
  1. TECFIDERA [Suspect]
     Active Substance: DIMETHYL FUMARATE
     Indication: Product used for unknown indication
     Route: 050
     Dates: start: 202004

REACTIONS (9)
  - Pain [Not Recovered/Not Resolved]
  - Gastrointestinal disorder [Unknown]
  - Fatigue [Unknown]
  - Motor dysfunction [Unknown]
  - Dyspnoea [Unknown]
  - Chest pain [Unknown]
  - Fall [Recovered/Resolved]
  - Diarrhoea [Unknown]
  - Abdominal pain upper [Unknown]

NARRATIVE: CASE EVENT DATE: 20220708
